FAERS Safety Report 18927466 (Version 1)
Quarter: 2021Q1

REPORT INFORMATION
  Report Type: Spontaneous
  Country: US (occurrence: US)
  Receive Date: 20210223
  Receipt Date: 20210223
  Transmission Date: 20210420
  Serious: No
  Sender: FDA-Public Use
  Company Number: US-FERRINGPH-2020FE05896

PATIENT
  Sex: Male

DRUGS (1)
  1. DESMOPRESSIN [Suspect]
     Active Substance: DESMOPRESSIN
     Indication: POLLAKIURIA
     Dosage: 10 UG ONE SPRAY IN EACH NOSTRIL ONCE DAILY
     Route: 045
     Dates: end: 20200821

REACTIONS (10)
  - Vertigo [Not Recovered/Not Resolved]
  - Thinking abnormal [Not Recovered/Not Resolved]
  - Product use in unapproved indication [Recovered/Resolved]
  - Nervousness [Not Recovered/Not Resolved]
  - Pain in extremity [Not Recovered/Not Resolved]
  - Memory impairment [Not Recovered/Not Resolved]
  - Recalled product administered [Recovered/Resolved]
  - Confusional state [Not Recovered/Not Resolved]
  - Out of specification product use [Recovered/Resolved]
  - Dizziness [Not Recovered/Not Resolved]
